FAERS Safety Report 4411570-1 (Version None)
Quarter: 2004Q3

REPORT INFORMATION
  Report Type: 
  Country: None (occurrence: None)
  Receive Date: 20040728
  Receipt Date: 20040728
  Transmission Date: 20050211
  Serious: No
  Sender: FDA-Public Use
  Company Number: None

PATIENT
  Age: 63 Year
  Sex: Male
  Weight: 108.2 kg

DRUGS (1)
  1. REOPRO [Suspect]
     Dates: start: 20040512

REACTIONS (5)
  - ANTIBODY TEST POSITIVE [None]
  - HAEMORRHAGE [None]
  - HAEMOTHORAX [None]
  - HYPOCOAGULABLE STATE [None]
  - THROMBOCYTOPENIA [None]
